FAERS Safety Report 8467472-7 (Version None)
Quarter: 2012Q2

REPORT INFORMATION
  Report Type: 
  Country: None (occurrence: None)
  Receive Date: 20120620
  Receipt Date: 20120605
  Transmission Date: 20120825
  Serious: Yes (Hospitalization)
  Sender: FDA-Public Use
  Company Number: TPA2012A02982

PATIENT
  Age: 81 Year
  Sex: Female
  Weight: 83.9154 kg

DRUGS (5)
  1. NORCO 10/325 (PARACETAMOL, HYDROCODONE BITARTRATE) [Concomitant]
  2. ULORIC [Suspect]
     Indication: HYPERURICAEMIA
     Dosage: 80 MG, 1 IN 1 D, PER ORAL
     Route: 048
     Dates: start: 20100310, end: 20101212
  3. BUMEX [Concomitant]
  4. AVAPRO [Concomitant]
  5. LEVOTHYROXINE SODIUM [Concomitant]

REACTIONS (10)
  - URINARY TRACT INFECTION [None]
  - ASTHENIA [None]
  - JAUNDICE [None]
  - FLUID INTAKE REDUCED [None]
  - DRUG-INDUCED LIVER INJURY [None]
  - MALAISE [None]
  - EATING DISORDER [None]
  - FAECES DISCOLOURED [None]
  - PYREXIA [None]
  - RENAL FAILURE ACUTE [None]
